FAERS Safety Report 8128562-1 (Version None)
Quarter: 2012Q1

REPORT INFORMATION
  Report Type: 
  Country: None (occurrence: None)
  Receive Date: 20120210
  Receipt Date: 20111206
  Transmission Date: 20120608
  Serious: No
  Sender: FDA-Public Use
  Company Number: US-BRISTOL-MYERS SQUIBB COMPANY-16273369

PATIENT
  Age: 61 Year
  Sex: Female

DRUGS (2)
  1. ORENCIA [Suspect]
     Dosage: LAST INF ON 26OCT11
     Route: 042
  2. METHOTREXATE [Concomitant]

REACTIONS (3)
  - SINUSITIS [None]
  - MALAISE [None]
  - STOMATITIS [None]
